FAERS Safety Report 13542908 (Version 1)
Quarter: 2017Q2

REPORT INFORMATION
  Report Type: Spontaneous
  Country: GB (occurrence: GB)
  Receive Date: 20170513
  Receipt Date: 20170513
  Transmission Date: 20170830
  Serious: Yes (Life-Threatening, Hospitalization)
  Sender: FDA-Public Use
  Company Number: GB-TORRENT-00015249

PATIENT
  Age: 30 Year
  Sex: Male

DRUGS (1)
  1. ARIPIPRAZOLE. [Suspect]
     Active Substance: ARIPIPRAZOLE

REACTIONS (7)
  - Heat stroke [Recovered/Resolved with Sequelae]
  - Blood creatine phosphokinase increased [Unknown]
  - Seizure [Unknown]
  - Body temperature increased [Unknown]
  - Pneumonia aspiration [Unknown]
  - Cardiac disorder [Recovered/Resolved]
  - Lung consolidation [Unknown]

NARRATIVE: CASE EVENT DATE: 201704
